FAERS Safety Report 17760767 (Version 4)
Quarter: 2020Q4

REPORT INFORMATION
  Report Type: Spontaneous
  Country: CZ (occurrence: CZ)
  Receive Date: 20200508
  Receipt Date: 20201207
  Transmission Date: 20210113
  Serious: Yes (Other)
  Sender: FDA-Public Use
  Company Number: CZ-BRISTOL-MYERS SQUIBB COMPANY-BMS-2020-035702

PATIENT
  Age: 71 Year
  Sex: Male

DRUGS (9)
  1. CARDURA [Concomitant]
     Active Substance: DOXAZOSIN MESYLATE
     Indication: BENIGN PROSTATIC HYPERPLASIA
     Dosage: 4 MILLIGRAM; 0-0-1
     Route: 065
  2. TRITACE [Concomitant]
     Active Substance: RAMIPRIL
     Indication: PRODUCT USED FOR UNKNOWN INDICATION
     Dosage: 2.5 MILLIGRAM
     Route: 065
  3. GODASAL [ACETYLSALICYLIC ACID;GLYCINE] [Concomitant]
     Indication: PRODUCT USED FOR UNKNOWN INDICATION
     Dosage: 100 MILLIGRAM
  4. CARDURA [Concomitant]
     Active Substance: DOXAZOSIN MESYLATE
     Indication: URINARY TRACT DISORDER PROPHYLAXIS
  5. ATORIS [Concomitant]
     Active Substance: ATORVASTATIN CALCIUM
     Indication: PRODUCT USED FOR UNKNOWN INDICATION
     Dosage: 20 MILLIGRAM; 0-0-1
     Route: 065
  6. APO-ALLOPURINOL [Concomitant]
     Active Substance: ALLOPURINOL
     Indication: PRODUCT USED FOR UNKNOWN INDICATION
     Dosage: 100 MILLIGRAM; 1-0-0
     Route: 065
  7. BETALOC ZOK [Concomitant]
     Active Substance: METOPROLOL SUCCINATE
     Indication: PRODUCT USED FOR UNKNOWN INDICATION
     Dosage: 50 MILLIGRAM; 1-0-0
     Route: 065
  8. WARFARIN SODIUM. [Suspect]
     Active Substance: WARFARIN SODIUM
     Indication: ATRIAL FIBRILLATION
     Dosage: UNK
     Route: 048
     Dates: start: 2013, end: 2020
  9. ATORIS [Concomitant]
     Active Substance: ATORVASTATIN CALCIUM
     Indication: PRODUCT USED FOR UNKNOWN INDICATION
     Dosage: 40 MILLIGRAM; 0-0-1
     Route: 065

REACTIONS (3)
  - Peripheral ischaemia [Recovered/Resolved]
  - Vascular calcification [Unknown]
  - Arteriosclerosis [Recovered/Resolved]
